FAERS Safety Report 4336924-3 (Version None)
Quarter: 2004Q2

REPORT INFORMATION
  Report Type: 
  Country: None (occurrence: None)
  Receive Date: 20040407
  Receipt Date: 20040325
  Transmission Date: 20050107
  Serious: Yes (Hospitalization, Other)
  Sender: FDA-Public Use
  Company Number: 2004020641

PATIENT
  Age: 12 Year
  Sex: Male
  Weight: 37.195 kg

DRUGS (2)
  1. ZOLOFT [Suspect]
     Indication: DEPRESSION
     Dosage: UNK (DAILY), ORAL
     Route: 048
     Dates: start: 20030201
  2. ZOLOFT [Suspect]
     Indication: TOURETTE'S DISORDER
     Dosage: UNK (DAILY), ORAL
     Route: 048
     Dates: start: 20030201

REACTIONS (4)
  - AGGRESSION [None]
  - ANGER [None]
  - DRUG INEFFECTIVE [None]
  - SINUSITIS [None]
